FAERS Safety Report 6725519-X (Version None)
Quarter: 2010Q2

REPORT INFORMATION
  Report Type: 
  Country: None (occurrence: None)
  Receive Date: 20100514
  Receipt Date: 20100511
  Transmission Date: 20101027
  Serious: Yes (Other)
  Sender: FDA-Public Use
  Company Number: FR-ROCHE-674487

PATIENT
  Sex: Male
  Weight: 104 kg

DRUGS (6)
  1. CELLCEPT [Suspect]
     Dosage: DOSE= 500 MG + 250 MG IN THE MORNING  AND 500 MG TWICE IN THE EVENING.
     Route: 048
     Dates: start: 20060801
  2. PROGRAF [Suspect]
     Dosage: DOSE: 1 MG + 0.5 MG IN THE MORNING AND 1 MG + 0.5 MG IN THE EVENING
     Route: 065
  3. MICARDIS [Concomitant]
     Indication: HYPERTENSION
     Dosage: DRUG: MICARDIS 40. DOSE: 1 UNIT IN THE EVENING
  4. CARDENSIEL [Concomitant]
     Indication: HYPERGLOBULINAEMIA
     Dosage: STRENGTH: 5. IN THE MORNING
  5. KARDEGIC [Concomitant]
     Indication: THROMBOSIS
     Dosage: DOSE: 1 UNIT IN THE EVENING, STRENGTH: 160
  6. CYMBALTA [Concomitant]
     Indication: ANTIDEPRESSANT THERAPY
     Dosage: SECOND INDICATION: ANTIPAIN. IN THE EVENING

REACTIONS (7)
  - BONE PAIN [None]
  - BURNING SENSATION [None]
  - MUSCLE ELECTROSTIMULATION THERAPY [None]
  - MYALGIA [None]
  - PARAESTHESIA [None]
  - THROMBOSIS [None]
  - VEIN PAIN [None]
